FAERS Safety Report 8215496-7 (Version None)
Quarter: 2012Q1

REPORT INFORMATION
  Report Type: 
  Country: None (occurrence: None)
  Receive Date: 20120314
  Receipt Date: 20120228
  Transmission Date: 20120608
  Serious: Yes (Other)
  Sender: FDA-Public Use
  Company Number: FK201200689

PATIENT
  Age: 46 Year
  Sex: Female

DRUGS (1)
  1. VANCOMYCIN [Suspect]
     Indication: RESPIRATORY FAILURE
     Dosage: UNKNOWN, UNKNOWN

REACTIONS (2)
  - TOXIC EPIDERMAL NECROLYSIS [None]
  - PURPURA [None]
